FAERS Safety Report 8719759 (Version 4)
Quarter: 2014Q1

REPORT INFORMATION
  Report Type: Spontaneous
  Country: JP (occurrence: JP)
  Receive Date: 20120813
  Receipt Date: 20140206
  Transmission Date: 20141002
  Serious: Yes (Death, Other)
  Sender: FDA-Public Use
  Company Number: PHHY2012JP068974

PATIENT
  Age: 72 Year
  Sex: Male
  Weight: 46 kg

DRUGS (5)
  1. ZOMETA [Suspect]
     Indication: METASTASES TO BONE
     Dosage: 4MG (PER ADMINISTATION)
     Route: 041
     Dates: start: 20090219, end: 20101214
  2. ZOMETA [Suspect]
     Dosage: UNK
     Dates: end: 201111
  3. AMARYL [Concomitant]
     Dosage: 6 MG, UNK
     Route: 048
     Dates: start: 20020128, end: 20120912
  4. GLYCORAN [Concomitant]
     Dosage: 500 MG, UNK
     Route: 048
     Dates: start: 20090904, end: 20120912
  5. DOCETAXEL [Concomitant]
     Dosage: 73.5 MG, UNK
     Route: 041
     Dates: start: 20090915, end: 20120420

REACTIONS (7)
  - Prostate cancer [Fatal]
  - Osteonecrosis of jaw [Not Recovered/Not Resolved]
  - Cellulitis [Recovering/Resolving]
  - Dental caries [Unknown]
  - Sinusitis [Unknown]
  - Hyperaesthesia [Unknown]
  - Hypersensitivity [Unknown]
